FAERS Safety Report 19268065 (Version 2)
Quarter: 2021Q2

REPORT INFORMATION
  Report Type: Other
  Country: UA (occurrence: UA)
  Receive Date: 20210518
  Receipt Date: 20210527
  Transmission Date: 20210717
  Serious: Yes (Other)
  Sender: FDA-Public Use
  Company Number: UA-ROCHE-2825104

PATIENT

DRUGS (3)
  1. BEVACIZUMAB. [Suspect]
     Active Substance: BEVACIZUMAB
     Indication: NON-SMALL CELL LUNG CANCER
     Route: 042
  2. PACLITAXEL. [Suspect]
     Active Substance: PACLITAXEL
     Indication: NON-SMALL CELL LUNG CANCER
     Dosage: ON DAY 1 OF EVERY 3?WEEK CYCLE FOR SIX CYCLES (WEEK 18)
     Route: 065
  3. CARBOPLATIN. [Suspect]
     Active Substance: CARBOPLATIN
     Indication: NON-SMALL CELL LUNG CANCER
     Dosage: ON DAY 1 OF EVERY 3?WEEK CYCLE FOR SIX CYCLES (WEEK 18)
     Route: 065

REACTIONS (24)
  - Neuropathy peripheral [Unknown]
  - Alanine aminotransferase increased [Unknown]
  - Vomiting [Unknown]
  - Pneumonia [Unknown]
  - Febrile neutropenia [Unknown]
  - Cough [Unknown]
  - Thrombocytopenia [Unknown]
  - Paraesthesia [Unknown]
  - Weight decreased [Unknown]
  - Platelet count decreased [Unknown]
  - Aspartate aminotransferase increased [Unknown]
  - Pulmonary embolism [Unknown]
  - Hypertension [Unknown]
  - Anaemia [Unknown]
  - Peripheral sensory neuropathy [Unknown]
  - Diarrhoea [Unknown]
  - Decreased appetite [Unknown]
  - General physical health deterioration [Unknown]
  - Fatigue [Unknown]
  - Asthenia [Unknown]
  - Neutropenia [Unknown]
  - Alopecia [Unknown]
  - Leukopenia [Unknown]
  - Proteinuria [Unknown]
